FAERS Safety Report 11919723 (Version 3)
Quarter: 2016Q3

REPORT INFORMATION
  Report Type: Spontaneous
  Country: US (occurrence: US)
  Receive Date: 20160115
  Receipt Date: 20160815
  Transmission Date: 20161109
  Serious: Yes (Hospitalization)
  Sender: FDA-Public Use
  Company Number: US-BEH-2016057586

PATIENT
  Age: 77 Year
  Sex: Male
  Weight: 113.4 kg

DRUGS (14)
  1. VITAMIN D [Concomitant]
     Active Substance: CHOLECALCIFEROL
  2. NITROSTAT [Concomitant]
     Active Substance: NITROGLYCERIN
  3. ASPIRIN. [Concomitant]
     Active Substance: ASPIRIN
  4. BERINERT [Suspect]
     Active Substance: HUMAN C1-ESTERASE INHIBITOR
     Indication: HEREDITARY ANGIOEDEMA
     Dosage: DOSAGE FREQUENCY: AS DIRECTED
     Route: 042
     Dates: start: 20140404
  5. AZELASTINE [Concomitant]
     Active Substance: AZELASTINE
  6. BERINERT [Suspect]
     Active Substance: HUMAN C1-ESTERASE INHIBITOR
     Indication: PROPHYLAXIS
  7. NOROCO [Concomitant]
  8. FINASTERIDE. [Concomitant]
     Active Substance: FINASTERIDE
  9. FLOMAX [Concomitant]
     Active Substance: TAMSULOSIN HYDROCHLORIDE
  10. SPIRIVA [Concomitant]
     Active Substance: TIOTROPIUM BROMIDE MONOHYDRATE
  11. COQ 10 [Concomitant]
     Active Substance: UBIDECARENONE
  12. FIRAZYR [Concomitant]
     Active Substance: ICATIBANT ACETATE
  13. METOPROLOL. [Concomitant]
     Active Substance: METOPROLOL
  14. NORVASC [Concomitant]
     Active Substance: AMLODIPINE BESYLATE

REACTIONS (2)
  - Off label use [Unknown]
  - Dental operation [Recovered/Resolved]

NARRATIVE: CASE EVENT DATE: 20151204
